FAERS Safety Report 21308086 (Version 1)
Quarter: 2022Q3

REPORT INFORMATION
  Report Type: Spontaneous
  Country: US (occurrence: US)
  Receive Date: 20220908
  Receipt Date: 20220908
  Transmission Date: 20221027
  Serious: No
  Sender: FDA-Public Use
  Company Number: US-NIPPON SHINYAKU-NIP-2022-000040

PATIENT

DRUGS (1)
  1. VILTOLARSEN [Suspect]
     Active Substance: VILTOLARSEN
     Indication: Duchenne muscular dystrophy
     Dosage: 3176 MILLIGRAM, QWK
     Route: 042
     Dates: start: 20211013, end: 202208

REACTIONS (4)
  - Infusion site swelling [Recovering/Resolving]
  - Complication associated with device [Unknown]
  - Device dislocation [Unknown]
  - Administration site extravasation [Unknown]

NARRATIVE: CASE EVENT DATE: 20220804
